FAERS Safety Report 14660075 (Version 1)
Quarter: 2018Q1

REPORT INFORMATION
  Report Type: Spontaneous
  Country: US (occurrence: US)
  Receive Date: 20180320
  Receipt Date: 20180320
  Transmission Date: 20180509
  Serious: No
  Sender: FDA-Public Use
  Company Number: US-PFIZER INC-2018112701

PATIENT
  Age: 63 Year
  Sex: Male

DRUGS (1)
  1. SUTENT [Suspect]
     Active Substance: SUNITINIB MALATE
     Indication: RENAL CANCER
     Dosage: 50 MG, CYCLIC, (EVERY DAY FOR 4 WEEKS SUBSEQUENTLY, 2 WEEKS OFF TO RESUME SAME CYCLE)
     Route: 048
     Dates: start: 201802

REACTIONS (3)
  - Hypogeusia [Unknown]
  - Dysgeusia [Unknown]
  - Blood pressure increased [Unknown]
